FAERS Safety Report 5809573-5 (Version None)
Quarter: 2008Q3

REPORT INFORMATION
  Report Type: 
  Country: None (occurrence: None)
  Receive Date: 20080709
  Receipt Date: 20080624
  Transmission Date: 20090109
  Serious: Yes (Hospitalization)
  Sender: FDA-Public Use
  Company Number: VNL_01151_2008

PATIENT
  Sex: Male

DRUGS (1)
  1. APO-GO (APO-GO PFS 5 MG/ML SOLUTION FOR INFUSION IN PRE-FILLED SYRINGE [Suspect]
     Indication: PARKINSON'S DISEASE
     Dosage: (4 MG PER HOUR FOR 0 MONTHS SUBCUTANEOUS)
     Route: 058
     Dates: start: 20080601, end: 20080601

REACTIONS (4)
  - BLOOD PRESSURE DECREASED [None]
  - JOINT SWELLING [None]
  - RASH [None]
  - SOMNOLENCE [None]
